FAERS Safety Report 5711185-9 (Version None)
Quarter: 2008Q2

REPORT INFORMATION
  Report Type: 
  Country: None (occurrence: None)
  Receive Date: 20080421
  Receipt Date: 20080410
  Transmission Date: 20081010
  Serious: Yes (Hospitalization)
  Sender: FDA-Public Use
  Company Number: FR-AVENTIS-200811352FR

PATIENT
  Age: 78 Year
  Sex: Female

DRUGS (10)
  1. LOVENOX [Suspect]
     Route: 058
     Dates: start: 20080117, end: 20080124
  2. STALEVO 100 [Suspect]
     Indication: PARKINSON'S DISEASE
     Route: 048
  3. ROCEPHIN [Suspect]
     Route: 042
     Dates: start: 20080116, end: 20080124
  4. LEXOMIL [Suspect]
     Indication: ANXIETY
     Route: 048
     Dates: start: 20080116, end: 20080116
  5. LEXOMIL [Suspect]
     Route: 048
     Dates: start: 20080117, end: 20080117
  6. LEXOMIL [Suspect]
     Route: 048
     Dates: start: 20080118, end: 20080118
  7. EFFERALGAN                         /00020001/ [Suspect]
     Route: 048
     Dates: start: 20080118, end: 20080120
  8. MOVICOL                            /01053601/ [Concomitant]
     Indication: CONSTIPATION
     Route: 048
     Dates: start: 20080119
  9. LEVOTHYROXINE SODIUM [Concomitant]
     Indication: HYPOTHYROIDISM
     Route: 048
  10. VASTAREL [Concomitant]
     Indication: ANGINA PECTORIS
     Route: 048

REACTIONS (1)
  - ORTHOSTATIC HYPOTENSION [None]
